FAERS Safety Report 26168938 (Version 1)
Quarter: 2025Q4

REPORT INFORMATION
  Report Type: Spontaneous
  Country: US (occurrence: US)
  Receive Date: 20251217
  Receipt Date: 20251217
  Transmission Date: 20260117
  Serious: No
  Sender: PACIRA
  Company Number: US-ORG100016242-2025000398

PATIENT
  Age: 89 Year
  Sex: Female

DRUGS (2)
  1. EXPAREL [Suspect]
     Active Substance: BUPIVACAINE
     Indication: Pulmonary resection
     Route: 050
     Dates: start: 20250929, end: 20250929
  2. STERILE WATER [Suspect]
     Active Substance: WATER
     Indication: Pulmonary resection
     Route: 050
     Dates: start: 20250929, end: 20250929

REACTIONS (2)
  - Product preparation issue [Unknown]
  - Ventricular extrasystoles [Unknown]

NARRATIVE: CASE EVENT DATE: 20250929
